FAERS Safety Report 10487544 (Version 2)
Quarter: 2014Q4

REPORT INFORMATION
  Report Type: Spontaneous
  Country: US (occurrence: US)
  Receive Date: 20141001
  Receipt Date: 20141014
  Transmission Date: 20150528
  Serious: Yes (Other)
  Sender: FDA-Public Use
  Company Number: US-BRISTOL-MYERS SQUIBB COMPANY-21426887

PATIENT
  Age: 59 Year
  Sex: Female

DRUGS (12)
  1. VALIUM [Concomitant]
     Active Substance: DIAZEPAM
     Indication: ANXIETY
  2. NAPROSYN [Concomitant]
     Active Substance: NAPROXEN
  3. KEFLEX [Concomitant]
     Active Substance: CEPHALEXIN
  4. DIFLUCAN [Concomitant]
     Active Substance: FLUCONAZOLE
  5. VITAMIN D [Concomitant]
     Active Substance: CHOLECALCIFEROL
  6. SPRYCEL [Suspect]
     Active Substance: DASATINIB
     Indication: ROSAI-DORFMAN SYNDROME
     Route: 048
     Dates: start: 201302
  7. LASIX [Concomitant]
     Active Substance: FUROSEMIDE
  8. PRAVASTATIN SODIUM. [Concomitant]
     Active Substance: PRAVASTATIN SODIUM
  9. SILVADENE [Concomitant]
     Active Substance: SILVER SULFADIAZINE
     Indication: SKIN INFECTION
  10. NEXIUM [Concomitant]
     Active Substance: ESOMEPRAZOLE MAGNESIUM
  11. COMPAZINE [Concomitant]
     Active Substance: PROCHLORPERAZINE MALEATE
     Indication: NAUSEA
  12. DIOVAN [Concomitant]
     Active Substance: VALSARTAN

REACTIONS (3)
  - Off label use [Unknown]
  - Malignant neoplasm progression [Unknown]
  - Umbilical hernia [Unknown]

NARRATIVE: CASE EVENT DATE: 20140630
